FAERS Safety Report 6183321-4 (Version None)
Quarter: 2009Q2

REPORT INFORMATION
  Report Type: 
  Country: None (occurrence: None)
  Receive Date: 20090506
  Receipt Date: 20090504
  Transmission Date: 20091009
  Serious: Yes (Life-Threatening)
  Sender: FDA-Public Use
  Company Number: 2008TJ0214FU3

PATIENT
  Age: 16 Year
  Sex: Male

DRUGS (2)
  1. TWINJECT 0.3 [Suspect]
     Indication: ANAPHYLACTIC REACTION
     Dosage: 0.3 MG, AS NEEDED
  2. INTERMITTENT USE OF ANTIHISTAMINES (UNSPECIFIED) [Concomitant]

REACTIONS (2)
  - DRUG DELIVERY SYSTEM MALFUNCTION [None]
  - PRODUCT QUALITY ISSUE [None]
